FAERS Safety Report 22283406 (Version 1)
Quarter: 2023Q2

REPORT INFORMATION
  Report Type: Spontaneous
  Country: US (occurrence: None)
  Receive Date: 20230503
  Receipt Date: 20230503
  Transmission Date: 20230721
  Serious: Yes (Disabling)
  Sender: FDA-Public Use
  Company Number: None

PATIENT
  Age: 76 Year
  Sex: Male
  Weight: 77.11 kg

DRUGS (6)
  1. LEVETIRACETAM [Suspect]
     Active Substance: LEVETIRACETAM
     Indication: Seizure
     Dosage: FREQUENCY : TWICE A DAY;?
     Route: 048
     Dates: start: 20180515, end: 20220108
  2. LATANOPROST [Concomitant]
     Active Substance: LATANOPROST
  3. TRADER JOE^S MEN^S ONCE DAILY HIGH POTENCY MULTIVITAMIN/MULTIMINERAL [Concomitant]
  4. RED YEAST [Concomitant]
     Active Substance: RED YEAST
  5. VITAMIN D3 [Concomitant]
     Active Substance: CHOLECALCIFEROL
  6. NATURE MADE MAGNESIUM [Concomitant]

REACTIONS (3)
  - Amnesia [None]
  - Learning disorder [None]
  - Illiteracy [None]

NARRATIVE: CASE EVENT DATE: 20181231
